FAERS Safety Report 5403741-2 (Version None)
Quarter: 2007Q3

REPORT INFORMATION
  Report Type: 
  Country: None (occurrence: None)
  Receive Date: 20070802
  Receipt Date: 20070725
  Transmission Date: 20080115
  Serious: Yes (Other)
  Sender: FDA-Public Use
  Company Number: HQWYE238727JUL07

PATIENT
  Sex: Female
  Weight: 62.14 kg

DRUGS (6)
  1. TIGECYCLINE [Suspect]
     Indication: BACTERAEMIA
     Route: 042
     Dates: start: 20070723, end: 20070725
  2. PROTONIX [Concomitant]
     Indication: GASTROOESOPHAGEAL REFLUX DISEASE
     Route: 048
     Dates: start: 20070720
  3. LOVENOX [Concomitant]
     Indication: DEEP VEIN THROMBOSIS
     Route: 058
     Dates: start: 20070720
  4. COUMADIN [Concomitant]
     Indication: DEEP VEIN THROMBOSIS
     Route: 048
     Dates: start: 20070723
  5. TESSALON [Concomitant]
     Indication: COUGH
     Dosage: 100MG THREE TIMES DAILY AS NEEDED
     Route: 048
     Dates: start: 20070724, end: 20070725
  6. IMODIUM [Concomitant]
     Indication: DIARRHOEA
     Dosage: 4 MG
     Route: 048
     Dates: start: 20070624

REACTIONS (1)
  - SUPRAVENTRICULAR TACHYCARDIA [None]
